FAERS Safety Report 6704671-6 (Version None)
Quarter: 2010Q2

REPORT INFORMATION
  Report Type: 
  Country: None (occurrence: None)
  Receive Date: 20100430
  Receipt Date: 20100420
  Transmission Date: 20101027
  Serious: Yes (Death)
  Sender: FDA-Public Use
  Company Number: NL-ROCHE-698587

PATIENT
  Sex: Male

DRUGS (1)
  1. XELODA [Suspect]
     Route: 048

REACTIONS (1)
  - DIHYDROPYRIMIDINE DEHYDROGENASE DEFICIENCY [None]
